FAERS Safety Report 14658979 (Version 1)
Quarter: 2018Q1

REPORT INFORMATION
  Report Type: Spontaneous
  Country: US (occurrence: US)
  Receive Date: 20180317
  Receipt Date: 20180317
  Transmission Date: 20180509
  Serious: No
  Sender: FDA-Public Use
  Company Number: None

PATIENT
  Age: 53 Year
  Sex: Female

DRUGS (1)
  1. CAPECITABINE 500MG WEST-WARD [Suspect]
     Active Substance: CAPECITABINE
     Indication: COLON CANCER
     Route: 048
     Dates: start: 20171129

REACTIONS (6)
  - Nausea [None]
  - Neuropathy peripheral [None]
  - Fatigue [None]
  - Allergy to metals [None]
  - Ageusia [None]
  - Temperature intolerance [None]

NARRATIVE: CASE EVENT DATE: 20180308
